FAERS Safety Report 4464040-9 (Version None)
Quarter: 2004Q3

REPORT INFORMATION
  Report Type: 
  Country: None (occurrence: None)
  Receive Date: 20040928
  Receipt Date: 20040928
  Transmission Date: 20050211
  Serious: Yes (Other)
  Sender: FDA-Public Use
  Company Number: None

PATIENT
  Sex: Male
  Weight: 74 kg

DRUGS (3)
  1. GEMCITABINE [Suspect]
     Dosage: 100MG/M2
  2. CARBOPLATIN [Suspect]
     Dosage: 5.5 IV Q3 WEEKS
     Route: 042
  3. ZILEUTON [Suspect]
     Dosage: 600 MG, PO QID DAILY
     Route: 048

REACTIONS (2)
  - CEREBRAL INFARCTION [None]
  - INFECTIVE THROMBOSIS [None]
